FAERS Safety Report 4810113-8 (Version None)
Quarter: 2005Q4

REPORT INFORMATION
  Report Type: 
  Country: None (occurrence: None)
  Receive Date: 20051024
  Receipt Date: 20051012
  Transmission Date: 20060501
  Serious: Yes (Death)
  Sender: FDA-Public Use
  Company Number: USA-2005-0021518

PATIENT
  Age: 60 Year
  Sex: 0

DRUGS (3)
  1. MORPHINE [Suspect]
     Dosage: SEE TEXT, ORAL
     Route: 048
  2. DIPHENHYDRAMINE HCL [Suspect]
     Dosage: SEE TEXT, ORAL
     Route: 048
  3. SERTRALINE HCL [Suspect]
     Dosage: SEE TEXT, ORAL
     Route: 048

REACTIONS (1)
  - INTENTIONAL DRUG MISUSE [None]
